FAERS Safety Report 15474278 (Version 2)
Quarter: 2018Q4

REPORT INFORMATION
  Report Type: Spontaneous
  Country: US (occurrence: US)
  Receive Date: 20181008
  Receipt Date: 20181031
  Transmission Date: 20190205
  Serious: Yes (Hospitalization, Other)
  Sender: FDA-Public Use
  Company Number: US-PFIZER INC-2018049417

PATIENT
  Age: 63 Year
  Sex: Male
  Weight: 212.7 kg

DRUGS (31)
  1. NACL [Concomitant]
     Active Substance: SODIUM CHLORIDE
     Dosage: 0.9 %, AS NEEDED (10-40 ML, LNTRACATHETER, PRN)
  2. KLOR-CON [Concomitant]
     Active Substance: POTASSIUM CHLORIDE
     Dosage: 40 MEQ, 1X/DAY
     Route: 048
  3. DULCOLAX NOS [Concomitant]
     Active Substance: BISACODYL OR DOCUSATE SODIUM
     Dosage: 10 MG, 1X/DAY
     Route: 054
  4. HYDROCERIN [Concomitant]
     Dosage: UNK UNK, 1X/DAY
     Route: 061
  5. PROTONIX [PANTOPRAZOLE SODIUM SESQUIHYDRATE] [Concomitant]
     Dosage: 40 MG, 1X/DAY
     Route: 048
  6. DEMADEX [TORASEMIDE] [Concomitant]
     Dosage: 20 MG, 2X/DAY
     Route: 048
  7. KLOR-CON [Concomitant]
     Active Substance: POTASSIUM CHLORIDE
     Dosage: 20 MEQ, 1X/DAY (QDAY WITH BREAKFAST)
     Route: 048
     Dates: start: 20171209
  8. TYLENOL [Concomitant]
     Active Substance: ACETAMINOPHEN
     Dosage: 650 MG, EVERY 4 HRS
     Route: 048
  9. ASPIRIN [ACETYLSALICYLIC ACID] [Concomitant]
     Active Substance: ASPIRIN
     Dosage: 81 MG, 1X/DAY
     Route: 048
  10. OCEAN SALINE NASAL SPRAY [Concomitant]
     Active Substance: SODIUM CHLORIDE
     Dosage: 1 DF, AS NEEDED (1 SPRAY, EACH NOSTRIL, PRN)
     Route: 045
  11. DUONEB [Concomitant]
     Active Substance: ALBUTEROL SULFATE\IPRATROPIUM BROMIDE
     Dosage: 3 ML, UNK (Q6H)
     Route: 055
  12. NACL [Concomitant]
     Active Substance: SODIUM CHLORIDE
     Dosage: UNK (10-40 ML LNTRACATHETER Q8H)
  13. ZAROXOLYN [Concomitant]
     Active Substance: METOLAZONE
     Dosage: 2.5 MG, 1X/DAY
     Route: 048
  14. THERAGRAN-M [MINERALS NOS;VITAMINS NOS] [Concomitant]
     Dosage: 1 DF, 1X/DAY (QDAY WITH BREAKFAST)
     Route: 048
  15. PERCOCET [OXYCODONE HYDROCHLORIDE;PARACETAMOL] [Concomitant]
     Dosage: UNK, AS NEEDED [OXYCODONE HYDROCHLORIDE-5 MG\PARACETAMOL-325 MG] 1-2 TABLET, ORAL, Q6H PRN
     Route: 048
  16. NEOSPORIN [BACITRACIN;NEOMYCIN SULFATE;POLYMYXIN B SULFATE] [Concomitant]
     Dosage: UNK UNK, 1X/DAY
     Route: 061
  17. MAALOX [ALUMINIUM HYDROXIDE GEL;MAGNESIUM HYDROXIDE] [Concomitant]
     Dosage: 30 ML, 4X/DAY
     Route: 048
  18. LOMOTIL [ATROPINE SULFATE;DIPHENOXYLATE HYDROCHLORIDE] [Concomitant]
     Dosage: UNK
  19. LOVENOX [Concomitant]
     Active Substance: ENOXAPARIN SODIUM
     Dosage: 40 MG, 2X/DAY
     Route: 058
  20. ADVIL [Suspect]
     Active Substance: IBUPROFEN
     Indication: ARTHRITIS
     Dosage: 400 MG TO 600 MG (2 TO 3 PILLS), AS NEEDED (2 TO 3 TIMES A DAY)
     Route: 048
     Dates: start: 2001
  21. MORPHINE [Concomitant]
     Active Substance: MORPHINE
     Dosage: UNK
  22. DIAMOX [ACETAZOLAMIDE] [Concomitant]
     Dosage: 125 MG, 2X/DAY
     Route: 048
  23. SYMBICORT [Concomitant]
     Active Substance: BUDESONIDE\FORMOTEROL FUMARATE DIHYDRATE
     Dosage: 2 DF, 2X/DAY ()160-4.5 MCG/ACT INHALER 2 PUFF)
     Route: 055
  24. COLACE [Concomitant]
     Active Substance: DOCUSATE SODIUM
     Dosage: 100 MG, 3X/DAY
     Route: 048
  25. FLUARIX QUADRIVALENT [Concomitant]
     Indication: IMMUNISATION
     Dosage: 0.5 MG, SINGLE(INJECTION (3 YEAR+))
     Route: 030
  26. MYCOSTATIN [Concomitant]
     Active Substance: NYSTATIN
     Dosage: UNK UNK, 3X/DAY
     Route: 061
  27. ALDACTONE [Concomitant]
     Active Substance: SPIRONOLACTONE
     Dosage: 25 MG, 2X/DAY
     Route: 048
  28. NORVASC [Concomitant]
     Active Substance: AMLODIPINE BESYLATE
     Dosage: 2.5 MG, 1X/DAY
     Route: 048
     Dates: start: 20171209
  29. MYLANTA [ALUMINIUM HYDROXIDE;MAGNESIUM HYDROXIDE;SIMETICONE] [Concomitant]
     Dosage: 30 ML, 4X/DAY
     Route: 048
  30. MILK OF MAGNESIA [Concomitant]
     Active Substance: MAGNESIUM HYDROXIDE
     Dosage: 45 ML, AS NEEDED (PRN)
     Route: 048
  31. ZOFRAN [ONDANSETRON] [Concomitant]
     Dosage: 4 MG, 4X/DAY
     Route: 042

REACTIONS (7)
  - Cardiac failure congestive [Unknown]
  - Coma [Unknown]
  - Paralysis [Unknown]
  - Appendicitis perforated [Unknown]
  - Renal disorder [Unknown]
  - Incorrect dose administered [Unknown]
  - Malaise [Unknown]
